FAERS Safety Report 14071806 (Version 6)
Quarter: 2018Q2

REPORT INFORMATION
  Report Type: Spontaneous
  Country: US (occurrence: US)
  Receive Date: 20171011
  Receipt Date: 20180402
  Transmission Date: 20180711
  Serious: No
  Sender: FDA-Public Use
  Company Number: US-PFIZER INC-2017434418

PATIENT
  Age: 69 Year
  Sex: Female
  Weight: 63 kg

DRUGS (3)
  1. ATORVASTATIN CALCIUM. [Suspect]
     Active Substance: ATORVASTATIN CALCIUM
     Dosage: 10 MG, 1X/DAY (AT BEDTIME)
     Route: 048
     Dates: start: 20170810, end: 20171002
  2. ATORVASTATIN CALCIUM. [Suspect]
     Active Substance: ATORVASTATIN CALCIUM
     Indication: BLOOD CHOLESTEROL INCREASED
     Dosage: 10 MG, 1X/DAY
     Route: 048
     Dates: start: 20120219
  3. ATORVASTATIN CALCIUM. [Suspect]
     Active Substance: ATORVASTATIN CALCIUM
     Indication: HYPERLIPIDAEMIA
     Dosage: 10 MG, 1X/DAY (QHS)
     Route: 048
     Dates: start: 2012

REACTIONS (8)
  - Fatigue [Recovered/Resolved]
  - Dehydration [Unknown]
  - Insomnia [Recovered/Resolved]
  - Malaise [Unknown]
  - Presyncope [Unknown]
  - Dizziness [Recovered/Resolved]
  - Drug ineffective [Unknown]
  - Somnolence [Unknown]

NARRATIVE: CASE EVENT DATE: 2017
